FAERS Safety Report 23261085 (Version 3)
Quarter: 2024Q1

REPORT INFORMATION
  Report Type: Spontaneous
  Country: US (occurrence: US)
  Receive Date: 20231205
  Receipt Date: 20240318
  Transmission Date: 20240409
  Serious: No
  Sender: FDA-Public Use
  Company Number: US-AMGEN-USASP2023212822

PATIENT
  Age: 26 Year
  Sex: Female

DRUGS (4)
  1. OTEZLA [Suspect]
     Active Substance: APREMILAST
     Indication: Psoriatic arthropathy
     Dosage: 30 MILLIGRAM, BID
     Route: 048
  2. OTEZLA [Suspect]
     Active Substance: APREMILAST
     Indication: Psoriasis
  3. BIMZELX [Concomitant]
     Active Substance: BIMEKIZUMAB-BKZX
     Dosage: UNK
  4. STELARA [Concomitant]
     Active Substance: USTEKINUMAB

REACTIONS (1)
  - Therapeutic product effect decreased [Unknown]
